FAERS Safety Report 6094497-1 (Version None)
Quarter: 2009Q1

REPORT INFORMATION
  Report Type: 
  Country: None (occurrence: None)
  Receive Date: 20090226
  Receipt Date: 20090219
  Transmission Date: 20090719
  Serious: Yes (Disabling, Other)
  Sender: FDA-Public Use
  Company Number: US-CELGENEUS-163-20785-09021242

PATIENT
  Sex: Male

DRUGS (2)
  1. THALOMID [Suspect]
     Indication: MULTIPLE MYELOMA
     Route: 048
     Dates: start: 20080801
  2. THALOMID [Suspect]
     Route: 048
     Dates: start: 20080501, end: 20080601

REACTIONS (3)
  - BONE DISORDER [None]
  - ILL-DEFINED DISORDER [None]
  - MOBILITY DECREASED [None]
